FAERS Safety Report 4512142-0 (Version None)
Quarter: 2004Q4

REPORT INFORMATION
  Report Type: 
  Country: None (occurrence: None)
  Receive Date: 20041129
  Receipt Date: 20040308
  Transmission Date: 20050328
  Serious: No
  Sender: FDA-Public Use
  Company Number: US-GLAXOSMITHKLINE-A0501625A

PATIENT
  Age: 89 Year
  Sex: Male

DRUGS (8)
  1. LANOXIN [Suspect]
     Indication: ILL-DEFINED DISORDER
     Dosage: .125MG PER DAY
     Route: 048
  2. CANDESARTAN [Concomitant]
  3. MODURETIC 5-50 [Concomitant]
  4. PLAVIX [Concomitant]
  5. ASPIRIN [Concomitant]
  6. LEVOXYL [Concomitant]
  7. LASIX [Concomitant]
  8. BETAPACE [Concomitant]

REACTIONS (4)
  - LOOSE STOOLS [None]
  - PARAESTHESIA [None]
  - TENSION HEADACHE [None]
  - VISUAL DISTURBANCE [None]
